FAERS Safety Report 17552683 (Version 1)
Quarter: 2020Q1

REPORT INFORMATION
  Report Type: Spontaneous
  Country: US (occurrence: US)
  Receive Date: 20200318
  Receipt Date: 20200318
  Transmission Date: 20200409
  Serious: Yes (Hospitalization)
  Sender: FDA-Public Use
  Company Number: US-LEADING PHARMA LLC-US-2020LEALIT00038

PATIENT
  Age: 58 Year
  Sex: Female

DRUGS (3)
  1. NORMAL SALINE [Interacting]
     Active Substance: SODIUM CHLORIDE
  2. ALBUMIN [Suspect]
     Active Substance: ALBUMIN HUMAN
  3. FUROSEMIDE TABLETS USP [Suspect]
     Active Substance: FUROSEMIDE

REACTIONS (5)
  - Hyponatraemia [Recovering/Resolving]
  - Abdominal distension [Unknown]
  - Breath sounds abnormal [Unknown]
  - Oedema [Unknown]
  - Hypovolaemia [Recovering/Resolving]
